FAERS Safety Report 5597407-6 (Version None)
Quarter: 2007Q4

REPORT INFORMATION
  Report Type: 
  Country: None (occurrence: None)
  Receive Date: 20071221
  Receipt Date: 20070828
  Transmission Date: 20080405
  Serious: No
  Sender: FDA-Public Use
  Company Number: SPV1-2007-04023

PATIENT
  Sex: Female

DRUGS (2)
  1. VYVANSE [Suspect]
     Dosage: 50 MG
     Dates: start: 20070821
  2. CYMBALTA [Concomitant]

REACTIONS (4)
  - ABDOMINAL PAIN [None]
  - CHEST DISCOMFORT [None]
  - DRUG DOSE OMISSION [None]
  - HEADACHE [None]
